FAERS Safety Report 7162169-8 (Version None)
Quarter: 2010Q4

REPORT INFORMATION
  Report Type: 
  Country: None (occurrence: None)
  Receive Date: 20101215
  Receipt Date: 20090902
  Transmission Date: 20110411
  Serious: Yes (Other)
  Sender: FDA-Public Use
  Company Number: AU-PFIZER INC-2009263524

PATIENT

DRUGS (6)
  1. LYRICA [Suspect]
     Indication: BACK INJURY
     Dosage: 50 MG, 3X/DAY
     Dates: start: 20090101
  2. LYRICA [Suspect]
     Dosage: 25 MG, 3X/DAY
     Dates: start: 20090101, end: 20090101
  3. NORFLEX [Concomitant]
     Dosage: UNK
  4. VALIUM [Concomitant]
     Dosage: UNK
  5. ANAPROX [Concomitant]
     Dosage: UNK
  6. DI-GESIC [Concomitant]
     Dosage: UNK

REACTIONS (11)
  - ARTHRALGIA [None]
  - CONFUSIONAL STATE [None]
  - CONSTIPATION [None]
  - DIZZINESS [None]
  - DYSPNOEA [None]
  - HAEMATOCHEZIA [None]
  - INSOMNIA [None]
  - MENTAL IMPAIRMENT [None]
  - RASH [None]
  - SOMNOLENCE [None]
  - TREMOR [None]
